FAERS Safety Report 19645386 (Version 1)
Quarter: 2021Q3

REPORT INFORMATION
  Report Type: Spontaneous
  Country: HR (occurrence: HR)
  Receive Date: 20210802
  Receipt Date: 20210802
  Transmission Date: 20211014
  Serious: Yes (Other)
  Sender: FDA-Public Use
  Company Number: HR-JNJFOC-20210742829

PATIENT
  Age: 43 Year
  Sex: Male
  Weight: 95 kg

DRUGS (3)
  1. REMICADE [Suspect]
     Active Substance: INFLIXIMAB
     Indication: CROHN^S DISEASE
     Dosage: (INDUCTION THERAPY 0?2?4?8 WEEKS
     Route: 042
     Dates: start: 20200415
  2. FOLACIN [FOLIC ACID] [Concomitant]
     Active Substance: FOLIC ACID
  3. IMURAN [Concomitant]
     Active Substance: AZATHIOPRINE

REACTIONS (4)
  - Intestinal stenosis [Unknown]
  - Gastrointestinal wall thickening [Unknown]
  - Gastrointestinal inflammation [Unknown]
  - Trichophytosis [Unknown]
